FAERS Safety Report 9163322 (Version 1)
Quarter: 2012Q4

REPORT INFORMATION
  Report Type: 
  Country: DE (occurrence: JP)
  Receive Date: 20121217
  Receipt Date: 20121217
  Transmission Date: 20130627
  Serious: Yes (Hospitalization)
  Sender: FDA-Public Use
  Company Number: JP-BRACCO-006624

PATIENT
  Age: 81 Year
  Sex: Female

DRUGS (2)
  1. IOPAMIRON [Suspect]
     Indication: COMPUTERISED TOMOGRAM ABDOMEN
     Route: 042
     Dates: start: 20120911, end: 20120911
  2. IOPAMIRON [Suspect]
     Indication: BACK PAIN
     Route: 042
     Dates: start: 20120911, end: 20120911

REACTIONS (3)
  - Pulmonary oedema [Unknown]
  - Cardiomegaly [Unknown]
  - Renal failure [Unknown]
